FAERS Safety Report 14593187 (Version 2)
Quarter: 2018Q1

REPORT INFORMATION
  Report Type: Report from Study
  Country: DE (occurrence: DE)
  Receive Date: 20180302
  Receipt Date: 20180326
  Transmission Date: 20180509
  Serious: Yes (Death, Life-Threatening, Hospitalization, Disabling)
  Sender: FDA-Public Use
  Company Number: PHHY2017DE111560

PATIENT
  Age: 59 Year
  Sex: Male
  Weight: 93 kg

DRUGS (3)
  1. HCT [Concomitant]
     Active Substance: HYDROCHLOROTHIAZIDE
     Indication: CARDIAC FAILURE
     Dosage: 25 MG, UNK
     Route: 065
     Dates: start: 20170309
  2. TORASEMIDE [Concomitant]
     Active Substance: TORSEMIDE
     Indication: CARDIAC FAILURE
     Dosage: 50 MG, UNK
     Route: 065
     Dates: start: 20160926
  3. ENTRESTO [Suspect]
     Active Substance: SACUBITRIL\VALSARTAN
     Indication: CARDIAC FAILURE
     Dosage: 50 MG (24 MG SACUBITRIL/26 VALSARTAN),UNK
     Route: 065
     Dates: start: 20170309, end: 20170622

REACTIONS (15)
  - Renal failure [Not Recovered/Not Resolved]
  - Blood thromboplastin decreased [Unknown]
  - Gamma-glutamyltransferase increased [Unknown]
  - Mean cell haemoglobin concentration decreased [Unknown]
  - Cardiac failure [Recovering/Resolving]
  - Infection [Recovering/Resolving]
  - Haemoglobin decreased [Unknown]
  - Endocarditis [Recovering/Resolving]
  - Blood glucose increased [Unknown]
  - Lymphocyte count increased [Unknown]
  - International normalised ratio increased [Unknown]
  - Prothrombin time prolonged [Unknown]
  - Death [Fatal]
  - Osteochondrosis [Recovering/Resolving]
  - Red blood cell count decreased [Unknown]

NARRATIVE: CASE EVENT DATE: 20170606
